FAERS Safety Report 6497784-8 (Version None)
Quarter: 2009Q4

REPORT INFORMATION
  Report Type: 
  Country: None (occurrence: None)
  Receive Date: 20091125
  Receipt Date: 20090218
  Transmission Date: 20100525
  Serious: Yes (Hospitalization)
  Sender: FDA-Public Use
  Company Number: 2009BH002719

PATIENT
  Age: 14 Year
  Sex: Female

DRUGS (1)
  1. DIANEAL [Suspect]
     Indication: PERITONEAL DIALYSIS
     Dosage: 15 L ; EVERY DAY ; IP
     Route: 033
     Dates: start: 20080101

REACTIONS (4)
  - CHEST PAIN [None]
  - MUSCULOSKELETAL PAIN [None]
  - PERITONEAL DIALYSIS COMPLICATION [None]
  - PERITONITIS BACTERIAL [None]
